FAERS Safety Report 8927083 (Version 3)
Quarter: 2013Q1

REPORT INFORMATION
  Report Type: Report from Study
  Country: US (occurrence: US)
  Receive Date: 20121127
  Receipt Date: 20130104
  Transmission Date: 20140127
  Serious: Yes (Hospitalization)
  Sender: FDA-Public Use
  Company Number: US-JNJFOC-20121110432

PATIENT
  Age: 26 None
  Sex: Male
  Weight: 73.48 kg

DRUGS (3)
  1. REMICADE [Suspect]
     Indication: CROHN^S DISEASE
     Route: 042
     Dates: start: 20121204
  2. REMICADE [Suspect]
     Indication: CROHN^S DISEASE
     Route: 042
     Dates: start: 20121011
  3. REMICADE [Suspect]
     Indication: CROHN^S DISEASE
     Dosage: INTERVAL: EVERY 4-6 WEEKS
     Route: 042
     Dates: start: 2011

REACTIONS (2)
  - Enteritis [Recovering/Resolving]
  - Weight increased [Recovering/Resolving]
